FAERS Safety Report 24624989 (Version 2)
Quarter: 2024Q4

REPORT INFORMATION
  Report Type: Spontaneous
  Country: DE (occurrence: DE)
  Receive Date: 20241115
  Receipt Date: 20241121
  Transmission Date: 20250114
  Serious: Yes (Other)
  Sender: MYLAN
  Company Number: DE-BRISTOL-MYERS SQUIBB COMPANY-2024-166931

PATIENT
  Age: 88 Year
  Sex: Female

DRUGS (1)
  1. APIXABAN [Suspect]
     Active Substance: APIXABAN
     Indication: Product used for unknown indication
     Dosage: 5 MILLIGRAM, BID
     Route: 065

REACTIONS (3)
  - Pulmonary contusion [Unknown]
  - Traumatic intracranial haemorrhage [Unknown]
  - Subarachnoid haemorrhage [Unknown]
